FAERS Safety Report 7351944-2 (Version None)
Quarter: 2011Q1

REPORT INFORMATION
  Report Type: 
  Country: None (occurrence: None)
  Receive Date: 20110310
  Receipt Date: 20110310
  Transmission Date: 20110831
  Serious: Yes (Disabling)
  Sender: FDA-Public Use
  Company Number: None

PATIENT
  Sex: Male
  Weight: 83.9154 kg

DRUGS (1)
  1. CIPRO [Suspect]
     Indication: PROSTATITIS
     Dosage: 500MG (60) 2XS A DAY ORAL
     Route: 048
     Dates: start: 20101001, end: 20101101

REACTIONS (6)
  - INSOMNIA [None]
  - ANXIETY [None]
  - PARAESTHESIA [None]
  - BURNING SENSATION [None]
  - HYPOAESTHESIA [None]
  - ELECTRIC SHOCK [None]
